FAERS Safety Report 16020578 (Version 1)
Quarter: 2019Q1

REPORT INFORMATION
  Report Type: Spontaneous
  Country: CA (occurrence: CA)
  Receive Date: 20190301
  Receipt Date: 20190301
  Transmission Date: 20190418
  Serious: Yes (Other)
  Sender: FDA-Public Use
  Company Number: CA-CELLTRION INC.-2019CA019033

PATIENT

DRUGS (5)
  1. INFLIXIMAB PFIZER (UNKNOWN) [Suspect]
     Active Substance: INFLIXIMAB
     Indication: CROHN^S DISEASE
     Dosage: 450 MG, UNK
     Route: 042
  2. INFLIXIMAB PFIZER (UNKNOWN) [Suspect]
     Active Substance: INFLIXIMAB
     Dosage: 500 MG, EVERY 4 WEEKS
     Route: 042
  3. REMICADE [Suspect]
     Active Substance: INFLIXIMAB
     Dosage: 10 MG/KG, EVERY 4 WEEKS
     Route: 042
  4. INFLIXIMAB PFIZER (UNKNOWN) [Suspect]
     Active Substance: INFLIXIMAB
     Dosage: 500 MG, EVERY 4 WEEKS
     Route: 042
  5. REMICADE [Suspect]
     Active Substance: INFLIXIMAB
     Indication: CROHN^S DISEASE
     Dosage: 10 MG/KG, EVERY 8 WEEKS
     Route: 042

REACTIONS (6)
  - Clostridium difficile infection [Recovering/Resolving]
  - Arthralgia [Recovering/Resolving]
  - Drug level decreased [Recovering/Resolving]
  - Off label use [Recovering/Resolving]
  - Product use issue [Recovering/Resolving]
  - Crohn^s disease [Recovering/Resolving]
